FAERS Safety Report 5563949-2 (Version None)
Quarter: 2007Q4

REPORT INFORMATION
  Report Type: 
  Country: None (occurrence: None)
  Receive Date: 20071217
  Receipt Date: 20071207
  Transmission Date: 20080405
  Serious: Yes (Hospitalization)
  Sender: FDA-Public Use
  Company Number: GR-PFIZER INC-2007103157

PATIENT

DRUGS (1)
  1. PEGAPTANIB SODIUM [Suspect]
     Indication: MACULAR DEGENERATION

REACTIONS (2)
  - CHEST PAIN [None]
  - TACHYCARDIA [None]
